FAERS Safety Report 9638594 (Version 2)
Quarter: 2014Q2

REPORT INFORMATION
  Report Type: Spontaneous
  Country: US (occurrence: US)
  Receive Date: 20131022
  Receipt Date: 20140424
  Transmission Date: 20141212
  Serious: No
  Sender: FDA-Public Use
  Company Number: US-BRISTOL-MYERS SQUIBB COMPANY-19475391

PATIENT
  Age: 90 Year
  Sex: Female

DRUGS (5)
  1. ELIQUIS [Suspect]
     Indication: PULMONARY EMBOLISM
     Route: 048
     Dates: start: 20130919, end: 20131203
  2. NORVASC [Concomitant]
  3. ALEVE [Concomitant]
  4. VITAMIN D [Concomitant]
  5. PERIACTINE [Concomitant]

REACTIONS (3)
  - Asthenia [Unknown]
  - Dizziness [Unknown]
  - Pruritus [Recovered/Resolved]
